FAERS Safety Report 9193776 (Version 1)
Quarter: 2013Q1

REPORT INFORMATION
  Report Type: Spontaneous
  Country: US (occurrence: None)
  Receive Date: 20130325
  Receipt Date: 20130325
  Transmission Date: 20140127
  Serious: Yes (Hospitalization)
  Sender: FDA-Public Use
  Company Number: None

PATIENT
  Sex: Male
  Weight: 109.77 kg

DRUGS (1)
  1. SAVELLA 50MG FOREST PHAR [Suspect]
     Indication: FIBROMYALGIA
     Dates: start: 20130224

REACTIONS (3)
  - Agitation [None]
  - Loss of consciousness [None]
  - Cerebrovascular accident [None]
